FAERS Safety Report 25244565 (Version 1)
Quarter: 2025Q2

REPORT INFORMATION
  Report Type: Spontaneous
  Country: US (occurrence: US)
  Receive Date: 20250428
  Receipt Date: 20250428
  Transmission Date: 20250716
  Serious: Yes (Hospitalization, Other)
  Sender: CIPLA
  Company Number: US-CIPLA LTD.-2025US05069

PATIENT

DRUGS (1)
  1. BUPROPION [Suspect]
     Active Substance: BUPROPION
     Indication: Product used for unknown indication
     Route: 048

REACTIONS (4)
  - Intestinal pseudo-obstruction [Recovering/Resolving]
  - Unresponsive to stimuli [Recovered/Resolved]
  - Intentional overdose [Unknown]
  - Seizure [Unknown]
